FAERS Safety Report 8458868-8 (Version None)
Quarter: 2012Q2

REPORT INFORMATION
  Report Type: 
  Country: None (occurrence: None)
  Receive Date: 20120622
  Receipt Date: 20120612
  Transmission Date: 20120825
  Serious: Yes (Hospitalization, Other)
  Sender: FDA-Public Use
  Company Number: US-ELI_LILLY_AND_COMPANY-US200804001895

PATIENT
  Sex: Female

DRUGS (15)
  1. PROZAC [Suspect]
     Indication: DEPRESSION
     Dosage: UNK, UNKNOWN
     Route: 065
     Dates: start: 19970101
  2. PLAVIX [Concomitant]
  3. CYMBALTA [Suspect]
     Dosage: 60 MG, UNKNOWN
     Route: 065
  4. ASPIRIN [Concomitant]
  5. GLUCOSAMINE W/CHONDROITIN [Concomitant]
  6. SIMVASTATIN [Concomitant]
  7. ENTERIC ASPIRIN [Concomitant]
  8. FORADIL [Concomitant]
  9. CITALOPRAM HYDROBROMIDE [Concomitant]
  10. CYMBALTA [Suspect]
     Indication: MAJOR DEPRESSION
     Dosage: UNK UNK, UNKNOWN
     Route: 065
     Dates: start: 20070801
  11. GLYBURIDE [Concomitant]
     Dosage: UNK, UNKNOWN
     Route: 065
  12. VENTOLIN HFA [Concomitant]
  13. LOPRESSOR [Concomitant]
  14. METFORMIN HCL [Concomitant]
  15. FISH OIL [Concomitant]

REACTIONS (17)
  - CARDIAC DISORDER [None]
  - BLOOD GLUCOSE DECREASED [None]
  - DEPRESSION [None]
  - INSOMNIA [None]
  - HYPOAESTHESIA [None]
  - ANXIETY [None]
  - COLON CANCER [None]
  - FALL [None]
  - CONTUSION [None]
  - DRUG INEFFECTIVE [None]
  - BACK PAIN [None]
  - NEGATIVE THOUGHTS [None]
  - DRUG EFFECT DECREASED [None]
  - HEADACHE [None]
  - BLOOD DISORDER [None]
  - LOSS OF CONSCIOUSNESS [None]
  - PAIN IN EXTREMITY [None]
